FAERS Safety Report 6372803-8 (Version None)
Quarter: 2009Q3

REPORT INFORMATION
  Report Type: 
  Country: None (occurrence: None)
  Receive Date: 20090924
  Receipt Date: 20081105
  Transmission Date: 20100115
  Serious: Yes (Other)
  Sender: FDA-Public Use
  Company Number: US-ASTRAZENECA-2008UW24868

PATIENT
  Age: 60 Year
  Sex: Female

DRUGS (6)
  1. SEROQUEL [Suspect]
     Route: 048
  2. LITHIUM [Concomitant]
  3. WELLBUTRIN [Concomitant]
  4. NEURONTIN [Concomitant]
  5. SELEGILINE HCL [Concomitant]
  6. MYSOLINE [Concomitant]

REACTIONS (1)
  - SUICIDAL IDEATION [None]
